FAERS Safety Report 26026883 (Version 3)
Quarter: 2025Q4

REPORT INFORMATION
  Report Type: Spontaneous
  Country: EU (occurrence: EU)
  Receive Date: 20251111
  Receipt Date: 20251219
  Transmission Date: 20260117
  Serious: Yes (Other)
  Sender: NOVARTIS
  Company Number: EU-002147023-NVSC2025AT172707

PATIENT
  Age: 51 Year
  Sex: Female

DRUGS (2)
  1. LETROZOLE [Suspect]
     Active Substance: LETROZOLE
     Indication: Hormone receptor positive breast cancer
     Dosage: UNK, QD
     Route: 048
     Dates: start: 20190906, end: 20251001
  2. EUTHYROX [Concomitant]
     Active Substance: LEVOTHYROXINE SODIUM
     Indication: Product used for unknown indication
     Dosage: 75 UG, QD
     Route: 065

REACTIONS (7)
  - Ileus [Unknown]
  - Adenocarcinoma metastatic [Unknown]
  - Enteritis [Unknown]
  - Disease recurrence [Unknown]
  - Ascites [Unknown]
  - Pulmonary embolism [Unknown]
  - Arterial thrombosis [Unknown]

NARRATIVE: CASE EVENT DATE: 20250107
